FAERS Safety Report 8149295-1 (Version None)
Quarter: 2012Q1

REPORT INFORMATION
  Report Type: 
  Country: None (occurrence: None)
  Receive Date: 20120218
  Receipt Date: 20110921
  Transmission Date: 20120608
  Serious: No
  Sender: FDA-Public Use
  Company Number: US-ALLERGAN-1112551US

PATIENT
  Age: 54 Year
  Sex: Female

DRUGS (3)
  1. BOTOX COSMETIC [Suspect]
     Indication: SKIN WRINKLING
     Dosage: 50 UNITS, SINGLE
     Route: 030
     Dates: start: 20110421, end: 20110421
  2. BOTOX COSMETIC [Suspect]
     Dosage: 24 UNK, SINGLE
     Route: 030
     Dates: start: 20110728, end: 20110728
  3. BOTOX COSMETIC [Suspect]
     Dosage: 20 UNK, SINGLE
     Route: 030
     Dates: start: 20110526, end: 20110526

REACTIONS (1)
  - DRUG INEFFECTIVE [None]
